FAERS Safety Report 9783060 (Version 5)
Quarter: 2016Q4

REPORT INFORMATION
  Report Type: Report from Study
  Country: US (occurrence: US)
  Receive Date: 20131226
  Receipt Date: 20161222
  Transmission Date: 20170207
  Serious: Yes (Hospitalization)
  Sender: FDA-Public Use
  Company Number: US-SA-2013SA131261

PATIENT
  Age: 63 Year
  Sex: Female

DRUGS (6)
  1. TOPROL XL [Concomitant]
     Active Substance: METOPROLOL SUCCINATE
  2. AUBAGIO [Suspect]
     Active Substance: TERIFLUNOMIDE
     Indication: MULTIPLE SCLEROSIS
     Route: 048
     Dates: start: 20131118, end: 20140401
  3. AUBAGIO [Suspect]
     Active Substance: TERIFLUNOMIDE
     Indication: MULTIPLE SCLEROSIS
     Route: 048
     Dates: end: 201611
  4. LASIX [Concomitant]
     Active Substance: FUROSEMIDE
  5. AUBAGIO [Suspect]
     Active Substance: TERIFLUNOMIDE
     Indication: MULTIPLE SCLEROSIS
     Route: 048
     Dates: end: 201502
  6. LASIX [Concomitant]
     Active Substance: FUROSEMIDE

REACTIONS (9)
  - Urinary tract infection [Recovering/Resolving]
  - Rib fracture [Unknown]
  - Fluid retention [Recovering/Resolving]
  - Drug ineffective [Unknown]
  - Fall [Unknown]
  - Cerebral disorder [Unknown]
  - Central nervous system lesion [Unknown]
  - Hypertension [Recovering/Resolving]
  - Muscle spasms [Unknown]

NARRATIVE: CASE EVENT DATE: 2015
